FAERS Safety Report 10622210 (Version 4)
Quarter: 2015Q1

REPORT INFORMATION
  Report Type: Spontaneous
  Country: US (occurrence: US)
  Receive Date: 20141203
  Receipt Date: 20150226
  Transmission Date: 20150720
  Serious: Yes (Death, Hospitalization)
  Sender: FDA-Public Use
  Company Number: US-PFIZER INC-2014330804

PATIENT
  Age: 57 Year
  Sex: Male

DRUGS (2)
  1. SOMAVERT [Suspect]
     Active Substance: PEGVISOMANT
     Indication: ACROMEGALY
  2. SOMAVERT [Suspect]
     Active Substance: PEGVISOMANT
     Indication: HYPOTHALAMO-PITUITARY DISORDER
     Dosage: 15 MG, DAILY
     Route: 058
     Dates: start: 20140106, end: 20141030

REACTIONS (4)
  - Colorectal cancer [Fatal]
  - Renal failure [Fatal]
  - Pulmonary embolism [Fatal]
  - Abscess [Fatal]

NARRATIVE: CASE EVENT DATE: 201410
